FAERS Safety Report 7877387-0 (Version None)
Quarter: 2011Q4

REPORT INFORMATION
  Report Type: 
  Country: None (occurrence: None)
  Receive Date: 20111031
  Receipt Date: 20111020
  Transmission Date: 20120403
  Serious: Yes (Hospitalization, Other)
  Sender: FDA-Public Use
  Company Number: US-ASTRAZENECA-2011SE38440

PATIENT
  Age: 43 Year
  Sex: Male
  Weight: 94.8 kg

DRUGS (2)
  1. SEROQUEL XR [Suspect]
     Route: 048
  2. CELEXA [Concomitant]

REACTIONS (1)
  - FOOT FRACTURE [None]
